FAERS Safety Report 25179139 (Version 1)
Quarter: 2025Q2

REPORT INFORMATION
  Report Type: Spontaneous
  Country: RU (occurrence: RU)
  Receive Date: 20250409
  Receipt Date: 20250409
  Transmission Date: 20250716
  Serious: Yes (Other)
  Sender: PFIZER
  Company Number: RU-PFIZER INC-PV202500040517

PATIENT
  Age: 48 Year
  Sex: Female

DRUGS (1)
  1. CRIZOTINIB [Suspect]
     Active Substance: CRIZOTINIB
     Dates: start: 202308

REACTIONS (5)
  - Brain oedema [Unknown]
  - Brain injury [Unknown]
  - Malignant neoplasm progression [Unknown]
  - Metastasis [Unknown]
  - Aphasia [Unknown]
